FAERS Safety Report 8839406 (Version 1)
Quarter: 2012Q4

REPORT INFORMATION
  Report Type: 
  Country: US (occurrence: US)
  Receive Date: 20121015
  Receipt Date: 20121015
  Transmission Date: 20130627
  Serious: Yes (Hospitalization, Other)
  Sender: FDA-Public Use
  Company Number: US-BAYER-2012-105220

PATIENT
  Age: 22 Year
  Sex: Female
  Weight: 83.45 kg

DRUGS (15)
  1. OCELLA [Suspect]
     Indication: PREMENSTRUAL SYNDROME
     Dosage: UNK
     Dates: start: 201102, end: 201104
  2. OCELLA [Suspect]
     Indication: MENSTRUATION IRREGULAR
  3. OCELLA [Suspect]
     Indication: POLYCYSTIC OVARIES
  4. TRAMADOL [Concomitant]
     Indication: TOOTHACHE
  5. OTHER ANALGESICS AND ANTIPYRETICS [Concomitant]
     Indication: TOOTHACHE
  6. AMOXICILLIN [Concomitant]
     Dosage: 500 mg, UNK
  7. AZITHROMYCIN [Concomitant]
     Dosage: 250 mg, UNK
  8. CEFTRIAXONE [Concomitant]
     Dosage: 125 mg, UNK
  9. ZITHROMAX [Concomitant]
  10. VICODIN [Concomitant]
     Indication: TOOTHACHE
     Dosage: 5 mg/325 mg, every 4 hours
     Route: 048
  11. GAS-X [Concomitant]
     Dosage: Meals and bedtime
     Route: 048
  12. PERCOCET [Concomitant]
     Indication: PAIN
  13. NITROFURANTOIN [Concomitant]
  14. LORTAB [Concomitant]
  15. DILAUDID [Concomitant]
     Indication: PAIN

REACTIONS (14)
  - Pulmonary embolism [None]
  - Deep vein thrombosis [None]
  - Pulmonary infarction [None]
  - Hepatic cyst [None]
  - Lung disorder [None]
  - Anxiety [None]
  - Weight increased [None]
  - Pain in extremity [None]
  - Flank pain [None]
  - Abdominal pain upper [None]
  - Dyspnoea exertional [None]
  - Dyspnoea [None]
  - Chest pain [None]
  - Pleural effusion [None]
